FAERS Safety Report 9225703 (Version 2)
Quarter: 2013Q2

REPORT INFORMATION
  Report Type: Spontaneous
  Country: US (occurrence: US)
  Receive Date: 20130411
  Receipt Date: 20130610
  Transmission Date: 20140414
  Serious: Yes (Death)
  Sender: FDA-Public Use
  Company Number: US-ELI_LILLY_AND_COMPANY-US201112003368

PATIENT
  Age: 74 Year
  Sex: Female

DRUGS (3)
  1. FORTEO [Suspect]
     Indication: OSTEOPOROSIS
     Dosage: 20 UG, QD
     Dates: start: 20111116
  2. FORTEO [Suspect]
     Dosage: 20 UG, QD
  3. ADVIL                              /00109201/ [Concomitant]

REACTIONS (22)
  - Pneumonia aspiration [Fatal]
  - Chronic obstructive pulmonary disease [Fatal]
  - Arthritis [Not Recovered/Not Resolved]
  - Pain in extremity [Not Recovered/Not Resolved]
  - Balance disorder [Not Recovered/Not Resolved]
  - Movement disorder [Unknown]
  - Musculoskeletal pain [Unknown]
  - Fatigue [Unknown]
  - Sleep disorder due to a general medical condition [Unknown]
  - Fall [Unknown]
  - Joint injury [Recovered/Resolved]
  - Face injury [Unknown]
  - Head injury [Unknown]
  - Contusion [Unknown]
  - Gait disturbance [Unknown]
  - Fear of falling [Unknown]
  - Injection site vesicles [Recovering/Resolving]
  - Injection site pain [Unknown]
  - Injection site bruising [Unknown]
  - Arthralgia [Not Recovered/Not Resolved]
  - Constipation [Unknown]
  - Dizziness [Not Recovered/Not Resolved]
